FAERS Safety Report 5646132-1 (Version None)
Quarter: 2008Q1

REPORT INFORMATION
  Report Type: 
  Country: None (occurrence: None)
  Receive Date: 20080227
  Receipt Date: 20080218
  Transmission Date: 20080703
  Serious: Yes (Life-Threatening)
  Sender: FDA-Public Use
  Company Number: B0509460A

PATIENT
  Age: 59 Year
  Sex: Male

DRUGS (2)
  1. AVANDIA [Suspect]
     Indication: DIABETES MELLITUS
     Dosage: ORAL
     Route: 048
     Dates: start: 20040101, end: 20080201
  2. GLIBENCLAMIDE [Concomitant]

REACTIONS (2)
  - CHOLESTASIS [None]
  - PHARMACEUTICAL PRODUCT COMPLAINT [None]
